FAERS Safety Report 4513181-6 (Version None)
Quarter: 2004Q4

REPORT INFORMATION
  Report Type: 
  Country: None (occurrence: None)
  Receive Date: 20041124
  Receipt Date: 20041109
  Transmission Date: 20050328
  Serious: Yes (Other)
  Sender: FDA-Public Use
  Company Number: USA041081402

PATIENT
  Age: 33 Year
  Sex: Female
  Weight: 98 kg

DRUGS (2)
  1. CYMBALTA [Suspect]
     Indication: DEPRESSION
     Dosage: 30 MG/1 DAY
     Dates: start: 20041014, end: 20041014
  2. EFFEXOR [Concomitant]

REACTIONS (7)
  - ANXIETY [None]
  - DROOLING [None]
  - DYSPNOEA [None]
  - HYPERHIDROSIS [None]
  - RASH GENERALISED [None]
  - RASH PAPULAR [None]
  - SPEECH DISORDER [None]
